FAERS Safety Report 18717359 (Version 1)
Quarter: 2021Q1

REPORT INFORMATION
  Report Type: Spontaneous
  Country: US (occurrence: US)
  Receive Date: 20210108
  Receipt Date: 20210108
  Transmission Date: 20210419
  Serious: Yes (Other)
  Sender: FDA-Public Use
  Company Number: US-AMNEAL PHARMACEUTICALS-2020-AMRX-03839

PATIENT
  Age: 9 Month
  Sex: Male

DRUGS (4)
  1. FAMOTIDINE. [Concomitant]
     Active Substance: FAMOTIDINE
     Indication: PRODUCT USED FOR UNKNOWN INDICATION
     Dosage: 40MG/5ML
     Route: 048
     Dates: start: 2020
  2. TRILEPTAL [Concomitant]
     Active Substance: OXCARBAZEPINE
     Indication: INFANTILE SPASMS
     Dosage: 300 MG/5ML
     Route: 048
     Dates: start: 2020
  3. VIGABATRIN. [Suspect]
     Active Substance: VIGABATRIN
     Indication: INFANTILE SPASMS
     Dosage: 250 MILLIGRAM (5 ML), 2X/DAY
     Route: 048
     Dates: start: 20201203, end: 202012
  4. TOPAMAX [Concomitant]
     Active Substance: TOPIRAMATE
     Indication: INFANTILE SPASMS
     Dosage: UNK
     Route: 065
     Dates: start: 2020

REACTIONS (1)
  - Seizure [Recovering/Resolving]

NARRATIVE: CASE EVENT DATE: 20201203
